FAERS Safety Report 8490935-5 (Version None)
Quarter: 2012Q2

REPORT INFORMATION
  Report Type: 
  Country: None (occurrence: None)
  Receive Date: 20120629
  Receipt Date: 20120629
  Transmission Date: 20120825
  Serious: No
  Sender: FDA-Public Use
  Company Number: None

PATIENT
  Age: 59 Year
  Sex: Female
  Weight: 60.782 kg

DRUGS (1)
  1. RECLAST [Suspect]
     Dosage: YEARLY

REACTIONS (9)
  - VOMITING [None]
  - LETHARGY [None]
  - DECREASED APPETITE [None]
  - PAIN [None]
  - NAUSEA [None]
  - DIZZINESS [None]
  - CHILLS [None]
  - HEADACHE [None]
  - FATIGUE [None]
